FAERS Safety Report 9178754 (Version 1)
Quarter: 2012Q4

REPORT INFORMATION
  Report Type: 
  Country: BR (occurrence: BR)
  Receive Date: 20121029
  Receipt Date: 20121029
  Transmission Date: 20130627
  Serious: Yes (Death, Other)
  Sender: FDA-Public Use
  Company Number: PHHY2012BR097198

PATIENT
  Age: 90 Year
  Sex: Male

DRUGS (1)
  1. RASILEZ [Suspect]
     Indication: RENAL FAILURE
     Dosage: 1 DF (150 mg), A day
     Route: 048
     Dates: start: 201203

REACTIONS (1)
  - Cerebrovascular accident [Fatal]
